FAERS Safety Report 10726418 (Version 1)
Quarter: 2015Q1

REPORT INFORMATION
  Report Type: Spontaneous
  Country: US (occurrence: None)
  Receive Date: 20150120
  Receipt Date: 20150120
  Transmission Date: 20150721
  Serious: Yes (Death, Hospitalization)
  Sender: FDA-Public Use
  Company Number: None

PATIENT
  Age: 86 Year
  Sex: Male
  Weight: 76.2 kg

DRUGS (1)
  1. IMBRUVICA [Suspect]
     Active Substance: IBRUTINIB
     Indication: CHRONIC LYMPHOCYTIC LEUKAEMIA
     Dosage: 3 PILLS, QD, ORAL
     Route: 048
     Dates: start: 20140809, end: 20140901

REACTIONS (3)
  - Hepatic failure [None]
  - Abdominal cavity drainage [None]
  - Abdominal distension [None]

NARRATIVE: CASE EVENT DATE: 20140816
